FAERS Safety Report 21553670 (Version 3)
Quarter: 2024Q2

REPORT INFORMATION
  Report Type: Report from Study
  Country: US (occurrence: US)
  Receive Date: 20221104
  Receipt Date: 20240422
  Transmission Date: 20240715
  Serious: No
  Sender: FDA-Public Use
  Company Number: US-ABBVIE-4187026

PATIENT
  Age: 76 Year
  Sex: Female

DRUGS (2)
  1. VENCLEXTA [Suspect]
     Active Substance: VENETOCLAX
     Indication: Acute myeloid leukaemia
     Dosage: TAKE 1 TABLET BY MOUTH ON DAY 1,  STRENGTH 100 MILLIGRAMS
     Route: 048
     Dates: start: 20221102, end: 20221102
  2. VENCLEXTA [Suspect]
     Active Substance: VENETOCLAX
     Indication: Acute myeloid leukaemia
     Dosage: 2 TABLET ON DAY 2, STRENGTH 100 MILLIGRAMS
     Route: 048
     Dates: start: 20221103

REACTIONS (3)
  - Fatigue [Unknown]
  - Nausea [Unknown]
  - Malaise [Recovering/Resolving]

NARRATIVE: CASE EVENT DATE: 20221102
